FAERS Safety Report 9478189 (Version 1)
Quarter: 2013Q3

REPORT INFORMATION
  Report Type: Spontaneous
  Country: FR (occurrence: FR)
  Receive Date: 20130827
  Receipt Date: 20130827
  Transmission Date: 20140515
  Serious: Yes (Hospitalization)
  Sender: FDA-Public Use
  Company Number: FR-PFIZER INC-2013243288

PATIENT
  Age: 58 Year
  Sex: Female

DRUGS (9)
  1. SOLU-MEDROL [Suspect]
     Indication: PREMEDICATION
     Dosage: 1 DF, 1X/DAY
     Route: 042
     Dates: start: 20130618, end: 20130618
  2. SOLU-MEDROL [Suspect]
     Dosage: 1 DF, 1X/DAY
     Route: 042
     Dates: start: 20130704, end: 20130704
  3. MABTHERA [Suspect]
     Indication: AUTOIMMUNE HAEMOLYTIC ANAEMIA
     Dosage: 1 G, CYCLICAL
     Route: 042
     Dates: start: 20130618, end: 20130618
  4. MABTHERA [Suspect]
     Dosage: 1 G, CYCLICAL
     Dates: start: 20130704, end: 20130704
  5. BACTRIM [Suspect]
     Indication: PROPHYLAXIS
     Dosage: 1 DF, 1X/DAY
     Route: 048
     Dates: start: 2012, end: 20130724
  6. SPECIAFOLDINE [Suspect]
     Dosage: 5 MG, 3X/DAY
     Route: 048
     Dates: start: 2012
  7. LEVOTHYROX [Suspect]
     Dosage: 87.5 UG, 1X/DAY
     Route: 048
  8. ZELITREX [Suspect]
     Dosage: 500 MG, 2X/DAY
     Route: 048
     Dates: start: 2012
  9. CORTANCYL [Suspect]
     Indication: AUTOIMMUNE HAEMOLYTIC ANAEMIA
     Dosage: 40 MG, 1X/DAY
     Route: 048
     Dates: start: 20130618, end: 20130703

REACTIONS (2)
  - Leukopenia [Recovered/Resolved]
  - Neutropenia [Recovered/Resolved]
